FAERS Safety Report 6035358-3 (Version None)
Quarter: 2009Q1

REPORT INFORMATION
  Report Type: 
  Country: None (occurrence: None)
  Receive Date: 20090109
  Receipt Date: 20090109
  Transmission Date: 20090719
  Serious: No
  Sender: FDA-Public Use
  Company Number: None

PATIENT

DRUGS (1)
  1. ETHYOL [Suspect]

REACTIONS (8)
  - APTYALISM [None]
  - DRUG INEFFECTIVE [None]
  - DRY MOUTH [None]
  - DYSGEUSIA [None]
  - DYSPHAGIA [None]
  - MASTICATION DISORDER [None]
  - RADIATION INJURY [None]
  - SALIVARY GLAND DISORDER [None]
